FAERS Safety Report 5837612-4 (Version None)
Quarter: 2008Q3

REPORT INFORMATION
  Report Type: 
  Country: None (occurrence: None)
  Receive Date: 20080807
  Receipt Date: 20080729
  Transmission Date: 20090109
  Serious: Yes (Other)
  Sender: FDA-Public Use
  Company Number: PHBS2008US05236

PATIENT
  Age: 8 Year
  Sex: Male

DRUGS (1)
  1. METHYLPHENIDATE HCL [Suspect]
     Indication: ATTENTION DEFICIT/HYPERACTIVITY DISORDER
     Route: 065

REACTIONS (6)
  - CYTOGENETIC ABNORMALITY [None]
  - DYSARTHRIA [None]
  - HUNTINGTON'S CHOREA [None]
  - HYPERTONIA [None]
  - INTENTION TREMOR [None]
  - MOTOR DYSFUNCTION [None]
